FAERS Safety Report 6152191-2 (Version None)
Quarter: 2009Q2

REPORT INFORMATION
  Report Type: 
  Country: None (occurrence: None)
  Receive Date: 20090410
  Receipt Date: 20081027
  Transmission Date: 20091009
  Serious: No
  Sender: FDA-Public Use
  Company Number: US-ASTRAZENECA-2008UW23920

PATIENT
  Age: 72 Year
  Sex: Female

DRUGS (4)
  1. TENORMIN [Suspect]
     Route: 048
     Dates: start: 19990101
  2. ZETIA [Concomitant]
  3. CARBIDOPA AND LEVODOPA [Concomitant]
  4. AZILECK [Concomitant]

REACTIONS (2)
  - ORTHOSTATIC HYPOTENSION [None]
  - PARKINSON'S DISEASE [None]
